FAERS Safety Report 8994128 (Version 1)
Quarter: 2013Q1

REPORT INFORMATION
  Report Type: Spontaneous
  Country: US (occurrence: US)
  Receive Date: 20130102
  Receipt Date: 20130102
  Transmission Date: 20140127
  Serious: No
  Sender: FDA-Public Use
  Company Number: US-AMGEN-USASP2012079745

PATIENT
  Age: 42 Year
  Sex: Female
  Weight: 63.5 kg

DRUGS (12)
  1. ENBREL [Suspect]
     Indication: RHEUMATOID ARTHRITIS
     Dosage: 50 MG, QWK
     Dates: start: 20121105
  2. DESYREL [Concomitant]
     Dosage: 100 MG, DAILY
  3. FOLIC ACID [Concomitant]
     Dosage: 0.8 MG, DAILY
     Route: 048
  4. IMITREX                            /01044801/ [Concomitant]
     Dosage: PRN
  5. METHOTREXATE SODIUM [Concomitant]
     Dosage: 2.5 MG (8 TABS WEEKLY)
     Route: 048
  6. NEURONTIN [Concomitant]
     Dosage: 300 MG, TID
  7. PERCOCET                           /00867901/ [Concomitant]
     Dosage: PRN PAIN
  8. TOPAMAX [Concomitant]
     Dosage: PRN PAIN
  9. HYDROXYCHLOROQUINE SULFATE [Concomitant]
     Dosage: 60OF 200 MG, BID (ONE TABLET BY MOUTH TWICE DAILY) (1 REFILLS)
     Dates: start: 20120709
  10. HYDROXYCHLOROQUINE SULFATE [Concomitant]
     Dosage: 60 OF 200 MG, BID (ONE TABLET BY MOUTH TWICE DAILY) (1 REFILLS)
     Dates: start: 20120925
  11. HYDROXYCHLOROQUINE SULFATE [Concomitant]
     Dosage: 60 OF 200 MG, BID (ONE TABLET BY MOUTH TWICE DAILY) (1 REFILLS)
     Dates: start: 20121126
  12. CYMBALTA [Concomitant]
     Dosage: 60 MG, DR DAILY

REACTIONS (5)
  - Tremor [Not Recovered/Not Resolved]
  - Headache [Not Recovered/Not Resolved]
  - Nausea [Not Recovered/Not Resolved]
  - Diarrhoea [Not Recovered/Not Resolved]
  - Injection site pain [Not Recovered/Not Resolved]
